FAERS Safety Report 23251276 (Version 1)
Quarter: 2023Q4

REPORT INFORMATION
  Report Type: Spontaneous
  Country: US (occurrence: US)
  Receive Date: 20231201
  Receipt Date: 20231201
  Transmission Date: 20240110
  Serious: Yes (Hospitalization)
  Sender: FDA-Public Use
  Company Number: US-MYLANLABS-2023M1126836

PATIENT
  Age: 69 Year
  Sex: Male

DRUGS (2)
  1. ABIRATERONE [Suspect]
     Active Substance: ABIRATERONE
     Indication: Prostate cancer
     Dosage: 1 GRAM, QD
     Route: 065
  2. PREDNISONE [Concomitant]
     Active Substance: PREDNISONE
     Indication: Prostate cancer
     Dosage: 5 MILLIGRAM, BID
     Route: 065

REACTIONS (6)
  - Hypokalaemia [Recovering/Resolving]
  - Metabolic alkalosis [Recovering/Resolving]
  - Hypocalcaemia [Recovering/Resolving]
  - Renal disorder [Recovering/Resolving]
  - Electrolyte imbalance [Recovering/Resolving]
  - Fall [Recovering/Resolving]
